FAERS Safety Report 8503089-3 (Version None)
Quarter: 2012Q2

REPORT INFORMATION
  Report Type: 
  Country: None (occurrence: None)
  Receive Date: 20120629
  Receipt Date: 20120619
  Transmission Date: 20120825
  Serious: Yes (Other)
  Sender: FDA-Public Use
  Company Number: B0810126A

PATIENT
  Age: 3 Month
  Sex: Female

DRUGS (2)
  1. CLOBETASOL PROPIONATE [Suspect]
     Indication: DERMATITIS DIAPER
     Dosage: TOPICAL
     Route: 061
  2. HYDROCORTISONE [Concomitant]

REACTIONS (8)
  - CONDITION AGGRAVATED [None]
  - DERMATITIS DIAPER [None]
  - IATROGENIC INJURY [None]
  - HYPERTENSION [None]
  - CONTRAINDICATION TO MEDICAL TREATMENT [None]
  - HYPOTHALAMO-PITUITARY DISORDER [None]
  - CUSHING'S SYNDROME [None]
  - EXCORIATION [None]
